FAERS Safety Report 8757481 (Version 2)
Quarter: 2012Q4

REPORT INFORMATION
  Report Type: Report from Study
  Country: US (occurrence: US)
  Receive Date: 20120828
  Receipt Date: 20120928
  Transmission Date: 20130627
  Serious: Yes (Hospitalization, Other)
  Sender: FDA-Public Use
  Company Number: US-US-EMD SERONO, INC.-7156248

PATIENT
  Sex: Female

DRUGS (6)
  1. REBIF [Suspect]
     Indication: MULTIPLE SCLEROSIS
     Route: 058
     Dates: start: 20120402
  2. REBIF [Suspect]
     Route: 058
     Dates: start: 201208
  3. MELOXICAM [Concomitant]
     Indication: ARTHRITIS
  4. HYDROCODONE [Concomitant]
     Indication: PAIN
  5. ALBUTEROL [Concomitant]
     Indication: ASTHMA
  6. FLONASE [Concomitant]
     Indication: HYPERSENSITIVITY

REACTIONS (5)
  - Hypocoagulable state [Recovered/Resolved]
  - Haemoglobin decreased [Recovered/Resolved]
  - Haematoma [Unknown]
  - Insomnia [Not Recovered/Not Resolved]
  - Influenza like illness [Unknown]
